FAERS Safety Report 15814540 (Version 2)
Quarter: 2019Q1

REPORT INFORMATION
  Report Type: Spontaneous
  Country: IT (occurrence: IT)
  Receive Date: 20190111
  Receipt Date: 20190225
  Transmission Date: 20190417
  Serious: Yes (Other)
  Sender: FDA-Public Use
  Company Number: IT-PFIZER INC-2019014859

PATIENT
  Age: 72 Year
  Sex: Female
  Weight: 60 kg

DRUGS (1)
  1. ZOLEDRONIC ACID [Suspect]
     Active Substance: ZOLEDRONIC ACID
     Indication: HYPERCALCAEMIA OF MALIGNANCY
     Dosage: 4 MG, UNK
     Dates: start: 20170303, end: 20180928

REACTIONS (2)
  - Fistula [Not Recovered/Not Resolved]
  - Alveolar bone resorption [Not Recovered/Not Resolved]

NARRATIVE: CASE EVENT DATE: 20181109
